FAERS Safety Report 6105384-4 (Version None)
Quarter: 2009Q1

REPORT INFORMATION
  Report Type: 
  Country: None (occurrence: None)
  Receive Date: 20090306
  Receipt Date: 20090224
  Transmission Date: 20090719
  Serious: Yes (Disabling)
  Sender: FDA-Public Use
  Company Number: NO-PFIZER INC-2009171026

PATIENT

DRUGS (5)
  1. ADRIAMYCIN PFS [Suspect]
     Indication: LYMPHOMA
  2. VINCRISTINE [Suspect]
     Indication: LYMPHOMA
  3. PREDNISOLONE [Suspect]
     Indication: LYMPHOMA
  4. CYCLOPHOSPHAMIDE [Suspect]
     Indication: LYMPHOMA
  5. MABTHERA [Suspect]
     Indication: LYMPHOMA
     Dosage: ROUTE:IV INFUSION, FORM:INFUSION RECEIVED 4 INFUSIONS ONLY
     Route: 042

REACTIONS (1)
  - DIZZINESS [None]
